FAERS Safety Report 17369079 (Version 1)
Quarter: 2020Q1

REPORT INFORMATION
  Report Type: Report from Study
  Country: US (occurrence: US)
  Receive Date: 20200204
  Receipt Date: 20200204
  Transmission Date: 20200409
  Serious: No
  Sender: FDA-Public Use
  Company Number: NVSC2019US048319

PATIENT
  Age: 59 Year
  Sex: Male
  Weight: 89.34 kg

DRUGS (1)
  1. ENTRESTO [Suspect]
     Active Substance: SACUBITRIL\VALSARTAN
     Indication: EJECTION FRACTION DECREASED
     Dosage: 50 MG (24MG SACUBITRIL AND 26MG VALSARTAN)
     Route: 048

REACTIONS (3)
  - Memory impairment [Unknown]
  - Poor quality sleep [Unknown]
  - Product use in unapproved indication [Unknown]

NARRATIVE: CASE EVENT DATE: 201911
